FAERS Safety Report 7659770-1 (Version None)
Quarter: 2011Q3

REPORT INFORMATION
  Report Type: 
  Country: None (occurrence: None)
  Receive Date: 20110805
  Receipt Date: 20101220
  Transmission Date: 20111222
  Serious: No
  Sender: FDA-Public Use
  Company Number: US-ABBOTT-10P-163-0693516-00

PATIENT
  Sex: Male
  Weight: 72.64 kg

DRUGS (2)
  1. MULTIPLE VITAMINS [Concomitant]
     Indication: VITAMIN SUPPLEMENTATION
  2. DEPAKOTE ER [Suspect]
     Indication: CONVULSION
     Dosage: 4 TABS IN MORNING + 1 IN EVENING
     Dates: start: 20060101

REACTIONS (1)
  - BLOOD PRESSURE INCREASED [None]
